FAERS Safety Report 24753392 (Version 1)
Quarter: 2024Q4

REPORT INFORMATION
  Report Type: Spontaneous
  Country: SE (occurrence: SE)
  Receive Date: 20241219
  Receipt Date: 20241219
  Transmission Date: 20250115
  Serious: Yes (Life-Threatening, Other)
  Sender: INSUD PHARMA
  Company Number: None

PATIENT
  Age: 43 Year
  Sex: Female
  Weight: 65 kg

DRUGS (1)
  1. DROSPIRENONE [Suspect]
     Active Substance: DROSPIRENONE
     Indication: Premenstrual dysphoric disorder
     Dosage: 1 TABLETT PER DAG
     Route: 048

REACTIONS (5)
  - Heavy menstrual bleeding [Recovered/Resolved]
  - Depression [Recovered/Resolved]
  - Menstrual disorder [Recovered/Resolved]
  - Suicide attempt [Recovered/Resolved]
  - Migraine [Recovered/Resolved]
